FAERS Safety Report 10459884 (Version 2)
Quarter: 2014Q3

REPORT INFORMATION
  Report Type: Spontaneous
  Country: US (occurrence: US)
  Receive Date: 20140917
  Receipt Date: 20140917
  Transmission Date: 20150326
  Serious: Yes (Hospitalization, Other)
  Sender: FDA-Public Use
  Company Number: PHEH2014US014577

PATIENT
  Age: 66 Year
  Sex: Female
  Weight: 92 kg

DRUGS (24)
  1. METFORMIN [Concomitant]
     Active Substance: METFORMIN HYDROCHLORIDE
  2. OXYCODONE [Concomitant]
     Active Substance: OXYCODONE
  3. AFINITOR [Suspect]
     Active Substance: EVEROLIMUS
     Indication: BREAST CANCER
     Dosage: 10 MG, QD
     Route: 048
     Dates: start: 20140327, end: 20140428
  4. ANASTROZOLE. [Concomitant]
     Active Substance: ANASTROZOLE
     Dosage: 1 MG, UNK
  5. MAGIC MOUTHWASH [Concomitant]
     Active Substance: DIPHENHYDRAMINE HYDROCHLORIDE\LIDOCAINE HYDROCHLORIDE\NYSTATIN
  6. METOPROLOL [Concomitant]
     Active Substance: METOPROLOL
  7. AFINITOR [Suspect]
     Active Substance: EVEROLIMUS
     Dosage: 10 MG, QD
     Dates: start: 20140505
  8. RANITIDINE [Concomitant]
     Active Substance: RANITIDINE\RANITIDINE HYDROCHLORIDE
     Dosage: 150 MG, UNK
  9. XARELTO [Concomitant]
     Active Substance: RIVAROXABAN
     Dosage: 20 MG, UNK
  10. EXEMESTANE. [Suspect]
     Active Substance: EXEMESTANE
     Dosage: 25 MG, UNK
  11. COLCRYS [Concomitant]
     Active Substance: COLCHICINE
  12. GABAPENTIN. [Concomitant]
     Active Substance: GABAPENTIN
     Dosage: 300 MG, UNK
  13. ENOXAPARIN [Concomitant]
     Active Substance: ENOXAPARIN
     Route: 058
  14. FUROSEMIDE. [Concomitant]
     Active Substance: FUROSEMIDE
     Dosage: 40 MG, UNK
  15. LISINOPRIL. [Concomitant]
     Active Substance: LISINOPRIL
     Dosage: 25 MG, UNK
  16. OXYCONTIN [Concomitant]
     Active Substance: OXYCODONE HYDROCHLORIDE
  17. POTASSIUM CHLORIDE. [Concomitant]
     Active Substance: POTASSIUM CHLORIDE
  18. PREDNISOLONE ACETATE. [Concomitant]
     Active Substance: PREDNISOLONE ACETATE
  19. CLINDAMYCIN [Concomitant]
     Active Substance: CLINDAMYCIN\CLINDAMYCIN PHOSPHATE
     Dosage: 300 MG, UNK
  20. ALLOPURINOL. [Concomitant]
     Active Substance: ALLOPURINOL
  21. CARVEDILOL. [Concomitant]
     Active Substance: CARVEDILOL
  22. CLOBETASOL [Concomitant]
     Active Substance: CLOBETASOL
     Route: 061
  23. ISOSORBIDE MONONITRATE. [Concomitant]
     Active Substance: ISOSORBIDE MONONITRATE
  24. MORPHINE [Concomitant]
     Active Substance: MORPHINE

REACTIONS (18)
  - Pulmonary embolism [Unknown]
  - Hypokalaemia [Unknown]
  - Blood urine present [Unknown]
  - Gingivitis [Recovered/Resolved]
  - Pulmonary infarction [Unknown]
  - Osteoarthritis [Unknown]
  - Rash [Unknown]
  - Stomatitis [Unknown]
  - Bone cancer [Unknown]
  - Second primary malignancy [Unknown]
  - Arthralgia [Unknown]
  - Tachycardia [Unknown]
  - Tuberculosis [Unknown]
  - Iron deficiency anaemia [Unknown]
  - Back pain [Unknown]
  - Pyrexia [Unknown]
  - Mouth ulceration [Recovered/Resolved]
  - Hepatic steatosis [Unknown]

NARRATIVE: CASE EVENT DATE: 20140114
